FAERS Safety Report 7638757-9 (Version None)
Quarter: 2011Q3

REPORT INFORMATION
  Report Type: 
  Country: None (occurrence: None)
  Receive Date: 20110727
  Receipt Date: 20110720
  Transmission Date: 20111222
  Serious: Yes (Hospitalization)
  Sender: FDA-Public Use
  Company Number: FR-ROCHE-784112

PATIENT
  Sex: Male
  Weight: 77 kg

DRUGS (10)
  1. MYCOPHENOLATE MOFETIL [Suspect]
     Route: 048
     Dates: start: 20110528, end: 20110615
  2. TENORMIN [Concomitant]
     Dates: start: 20110606
  3. MYCOPHENOLATE MOFETIL [Suspect]
     Dosage: DOSE REDUCED
     Route: 048
     Dates: start: 20110615
  4. LASIX [Concomitant]
     Dates: start: 20110611
  5. MYCOPHENOLATE MOFETIL [Suspect]
     Indication: RENAL TRANSPLANT
     Route: 048
     Dates: start: 20110518
  6. CERTICAN [Suspect]
     Indication: RENAL TRANSPLANT
     Dosage: DOSE REDUCED:ON 7 JUNE 2011,DOSE: 3.5, LAST DOSE  PRIOR TO SAE: 8 JUN 2011
     Route: 048
     Dates: start: 20110522, end: 20110608
  7. PROGRAF [Concomitant]
     Dates: start: 20110609
  8. AUGMENTIN '125' [Concomitant]
     Dosage: TDD: 500 MG X 3
     Dates: start: 20110711
  9. PREDNISOLONE [Suspect]
     Indication: RENAL TRANSPLANT
     Route: 048
     Dates: start: 20110519
  10. VALGANCICLOVIR [Concomitant]
     Dates: start: 20110519

REACTIONS (6)
  - NEUTROPENIA [None]
  - SCAR [None]
  - SCAR PAIN [None]
  - RENAL IMPAIRMENT [None]
  - LYMPHATIC DISORDER [None]
  - HYDRONEPHROSIS [None]
